FAERS Safety Report 8196118-0 (Version None)
Quarter: 2012Q1

REPORT INFORMATION
  Report Type: 
  Country: None (occurrence: None)
  Receive Date: 20120223
  Receipt Date: 20110819
  Transmission Date: 20120608
  Serious: Yes (Life-Threatening, Hospitalization, Disabling)
  Sender: FDA-Public Use
  Company Number: WAES 1108USA02500

PATIENT
  Sex: Male

DRUGS (1)
  1. ZOCOR [Suspect]
     Indication: PRODUCT USED FOR UNKNOWN INDICATION
     Dosage: 40 MG/DAILY/PO
     Route: 048
     Dates: start: 20090401

REACTIONS (1)
  - INTERSTITIAL LUNG DISEASE [None]
